FAERS Safety Report 12083822 (Version 1)
Quarter: 2016Q1

REPORT INFORMATION
  Report Type: Spontaneous
  Country: US (occurrence: None)
  Receive Date: 20160216
  Receipt Date: 20160216
  Transmission Date: 20160526
  Serious: Yes (Other)
  Sender: FDA-Public Use
  Company Number: None

PATIENT
  Age: 30 Year
  Sex: Female
  Weight: 111.13 kg

DRUGS (1)
  1. BELSOMRA [Suspect]
     Active Substance: SUVOREXANT
     Indication: SLEEP DISORDER
     Route: 048

REACTIONS (6)
  - Confusional state [None]
  - Somnambulism [None]
  - Legal problem [None]
  - Somnolence [None]
  - Agitation [None]
  - Quality of life decreased [None]

NARRATIVE: CASE EVENT DATE: 20151118
